FAERS Safety Report 14077287 (Version 1)
Quarter: 2017Q4

REPORT INFORMATION
  Report Type: Spontaneous
  Country: FR (occurrence: FR)
  Receive Date: 20171012
  Receipt Date: 20171012
  Transmission Date: 20180321
  Serious: Yes (Hospitalization, Other)
  Sender: FDA-Public Use
  Company Number: FR-ROCHE-2001242

PATIENT
  Age: 54 Year
  Sex: Male

DRUGS (9)
  1. ROACTEMRA [Suspect]
     Active Substance: TOCILIZUMAB
     Indication: OVERLAP SYNDROME
     Route: 041
     Dates: start: 20170131
  2. TRACLEER [Concomitant]
     Active Substance: BOSENTAN
  3. CORTANCYL [Concomitant]
     Active Substance: PREDNISONE
  4. ROACTEMRA [Suspect]
     Active Substance: TOCILIZUMAB
     Route: 041
     Dates: start: 20170414
  5. INEXIUM [Concomitant]
     Active Substance: ESOMEPRAZOLE
  6. FENTANYL. [Concomitant]
     Active Substance: FENTANYL
  7. ROACTEMRA [Suspect]
     Active Substance: TOCILIZUMAB
     Route: 041
     Dates: start: 20170511
  8. ROACTEMRA [Suspect]
     Active Substance: TOCILIZUMAB
     Route: 041
     Dates: start: 20170317
  9. DOLIPRANE [Concomitant]
     Active Substance: ACETAMINOPHEN

REACTIONS (5)
  - Neuropathy peripheral [Recovered/Resolved]
  - Headache [Recovering/Resolving]
  - Neutropenia [Recovered/Resolved]
  - Intentional product use issue [Unknown]
  - Off label use [Unknown]

NARRATIVE: CASE EVENT DATE: 20170228
